FAERS Safety Report 17393255 (Version 5)
Quarter: 2021Q4

REPORT INFORMATION
  Report Type: Report from Study
  Country: None (occurrence: FR)
  Receive Date: 20200207
  Receipt Date: 20211014
  Transmission Date: 20220303
  Serious: Yes (Death, Other)
  Sender: FDA-Public Use
  Company Number: FR-ABBVIE-20K-056-3266285-00

PATIENT
  Age: 83 Year
  Sex: Female
  Weight: 56 kg

DRUGS (3)
  1. VENETOCLAX [Suspect]
     Active Substance: VENETOCLAX
     Indication: Chronic lymphocytic leukaemia
     Route: 048
     Dates: start: 20191106, end: 20200129
  2. FASTURTEC [Concomitant]
     Active Substance: RASBURICASE
     Indication: Blood uric acid increased
     Dates: start: 20191105, end: 20191105
  3. NITROFURANTOIN [Concomitant]
     Active Substance: NITROFURANTOIN
     Indication: Escherichia urinary tract infection
     Dates: start: 20191105, end: 20191105

REACTIONS (20)
  - Breast cancer metastatic [Fatal]
  - Thrombocytopenia [Fatal]
  - Confusional state [Unknown]
  - Pancytopenia [Not Recovered/Not Resolved]
  - Thrombocytopenia [Not Recovered/Not Resolved]
  - Epistaxis [Recovered/Resolved]
  - Presyncope [Recovered/Resolved]
  - Night sweats [Recovered/Resolved]
  - Hypercalcaemia [Recovered/Resolved]
  - Pseudomonas infection [Unknown]
  - Escherichia urinary tract infection [Recovered/Resolved]
  - Hyperuricaemia [Recovered/Resolved]
  - Hypocalcaemia [Not Recovered/Not Resolved]
  - Nausea [Recovered/Resolved]
  - Neutropenia [Recovered/Resolved]
  - Night sweats [Unknown]
  - Gingival bleeding [Unknown]
  - Escherichia urinary tract infection [Unknown]
  - Hyperuricaemia [Unknown]
  - Hypocalcaemia [Unknown]

NARRATIVE: CASE EVENT DATE: 20191101
